FAERS Safety Report 5714737-5 (Version None)
Quarter: 2008Q2

REPORT INFORMATION
  Report Type: 
  Country: None (occurrence: None)
  Receive Date: 20080423
  Receipt Date: 20051219
  Transmission Date: 20081010
  Serious: Yes (Death)
  Sender: FDA-Public Use
  Company Number: US-ROCHE-429190

PATIENT

DRUGS (4)
  1. CAPECITABINE [Suspect]
     Route: 065
  2. OXALIPLATIN [Suspect]
     Route: 065
  3. IRINOTECAN HCL [Suspect]
     Route: 065
  4. CISPLATIN [Suspect]
     Route: 065

REACTIONS (1)
  - DEATH [None]
